FAERS Safety Report 5974679-7 (Version None)
Quarter: 2008Q4

REPORT INFORMATION
  Report Type: 
  Country: None (occurrence: None)
  Receive Date: 20081201
  Receipt Date: 20080205
  Transmission Date: 20090506
  Serious: No
  Sender: FDA-Public Use
  Company Number: US-AMGEN-KDL261129

PATIENT
  Sex: Female
  Weight: 103.1 kg

DRUGS (8)
  1. ENBREL [Suspect]
     Indication: RHEUMATOID ARTHRITIS
     Route: 058
     Dates: start: 20071218
  2. METHOTREXATE [Concomitant]
     Route: 048
     Dates: start: 20071023
  3. SYNTHROID [Concomitant]
     Dates: start: 20070808
  4. AMBIEN [Concomitant]
     Dates: start: 20070808
  5. VITAMIN B COMPLEX CAP [Concomitant]
     Dates: start: 20070808
  6. AUGMENTIN '125' [Concomitant]
     Dates: start: 20071008
  7. FOLIC ACID [Concomitant]
     Dates: start: 20071023
  8. VICODIN [Concomitant]
     Dates: start: 20080115

REACTIONS (5)
  - INJECTION SITE ERYTHEMA [None]
  - INJECTION SITE PAIN [None]
  - INJECTION SITE PRURITUS [None]
  - INJECTION SITE SWELLING [None]
  - INJECTION SITE WARMTH [None]
